FAERS Safety Report 4286164-1 (Version None)
Quarter: 2004Q1

REPORT INFORMATION
  Report Type: 
  Country: None (occurrence: None)
  Receive Date: 20040120
  Receipt Date: 20021206
  Transmission Date: 20041129
  Serious: Yes (Death, Other)
  Sender: FDA-Public Use
  Company Number: 02-244

PATIENT
  Age: 29 Year
  Sex: Male
  Weight: 81.1939 kg

DRUGS (3)
  1. DESMOPRESSIN ACETATE [Suspect]
     Indication: DIABETES INSIPIDUS
     Dosage: 4 MCG
     Dates: start: 20021206
  2. SODIUM CHLORIDE [Concomitant]
  3. POTASSIUM [Concomitant]

REACTIONS (1)
  - DRUG INEFFECTIVE [None]
